FAERS Safety Report 25852180 (Version 3)
Quarter: 2025Q4

REPORT INFORMATION
  Report Type: Spontaneous
  Country: US (occurrence: US)
  Receive Date: 20250926
  Receipt Date: 20251017
  Transmission Date: 20260118
  Serious: Yes (Hospitalization)
  Sender: CYCLE PHARMACEUTICALS
  Company Number: US-CYCLE PHARMACEUTICALS LTD-2025-CYC-000150

PATIENT

DRUGS (3)
  1. NITYR [Suspect]
     Active Substance: NITISINONE
     Indication: Tyrosinaemia
     Dosage: 25 MG, BID (TWO 10 MG TABS AND ONE 5 MG TABS FOR A TOTAL OF 25 MG)
     Route: 048
     Dates: start: 20231101
  2. NITYR [Suspect]
     Active Substance: NITISINONE
     Indication: Tyrosinaemia
     Dosage: 25 MG, BID  (TWO 10 MG TABS AND ONE 5 MG TABS FOR A TOTAL OF 25 MG)
     Route: 048
     Dates: start: 20231101
  3. VITAMIN D NOS [Concomitant]
     Active Substance: CHOLECALCIFEROL\ERGOCALCIFEROL
     Indication: Product used for unknown indication
     Dosage: UNK
     Route: 065

REACTIONS (1)
  - Pain [Not Recovered/Not Resolved]

NARRATIVE: CASE EVENT DATE: 20250904
